FAERS Safety Report 9570823 (Version 3)
Quarter: 2014Q1

REPORT INFORMATION
  Report Type: Report from Study
  Country: IT (occurrence: IT)
  Receive Date: 20131001
  Receipt Date: 20140128
  Transmission Date: 20141002
  Serious: Yes (Hospitalization, Other)
  Sender: FDA-Public Use
  Company Number: IT-ASTRAZENECA-2013SE62082

PATIENT
  Age: 759 Month
  Sex: Male
  Weight: 80 kg

DRUGS (13)
  1. MEROPENEM [Suspect]
     Indication: INFECTION
     Route: 042
     Dates: start: 20130806
  2. FLUCONAZOLE [Suspect]
     Indication: INFECTION
     Route: 042
     Dates: start: 20130806
  3. TEICOPLANINE [Suspect]
     Indication: INFECTION
     Route: 042
     Dates: start: 20130806
  4. AZD6140 CODE NOT BROKEN [Suspect]
     Indication: PERIPHERAL ARTERIAL OCCLUSIVE DISEASE
     Route: 048
     Dates: start: 20130619
  5. BISOPROLOLO [Concomitant]
     Indication: HYPERTENSION
     Route: 048
     Dates: start: 20130806
  6. CLEXANE [Concomitant]
     Indication: PERIPHERAL ARTERIAL OCCLUSIVE DISEASE
     Route: 058
     Dates: start: 20130806
  7. ESOMEPRAZOLE [Concomitant]
     Indication: GASTRITIS PROPHYLAXIS
     Route: 048
     Dates: start: 20130806
  8. HUMALOG [Concomitant]
     Indication: TYPE 2 DIABETES MELLITUS
     Route: 058
     Dates: start: 20130806
  9. LANTUS [Concomitant]
     Indication: TYPE 2 DIABETES MELLITUS
     Route: 058
     Dates: start: 20130806
  10. LASIX [Concomitant]
     Indication: HYPERTENSION
     Route: 042
     Dates: start: 20130806, end: 20130809
  11. LASIX [Concomitant]
     Indication: HYPERTENSION
     Route: 042
     Dates: start: 20130809
  12. PRITOR [Concomitant]
     Indication: HYPERTENSION
     Route: 048
     Dates: start: 20130806
  13. SIMVASTATINE [Concomitant]
     Indication: HYPERCHOLESTEROLAEMIA
     Route: 048
     Dates: start: 20130806

REACTIONS (1)
  - Thermal burn [Recovering/Resolving]
